FAERS Safety Report 18112634 (Version 1)
Quarter: 2020Q3

REPORT INFORMATION
  Report Type: Spontaneous
  Country: DE (occurrence: DE)
  Receive Date: 20200805
  Receipt Date: 20200805
  Transmission Date: 20201103
  Serious: Yes (Other)
  Sender: FDA-Public Use
  Company Number: NVSC2020DE171944

PATIENT
  Age: 70 Year
  Sex: Female

DRUGS (1)
  1. ESTRAMON CONTI 30/95 MIKROGRAMM/24 H TRANSDERMALES PFLASTER [Suspect]
     Active Substance: ESTRADIOL\NORETHINDRONE ACETATE
     Indication: MENOPAUSAL SYMPTOMS
     Dosage: UNK (ANBRUCH ENDE JANUAR 2020DOSIERUNG WIE AUF DER PACKUNG ANGEGEBEN)
     Route: 065
     Dates: start: 2020

REACTIONS (4)
  - Device issue [Unknown]
  - Product quality issue [Unknown]
  - Haemorrhage [Unknown]
  - Breast discomfort [Unknown]

NARRATIVE: CASE EVENT DATE: 2020
